FAERS Safety Report 10990632 (Version 1)
Quarter: 2015Q1

REPORT INFORMATION
  Report Type: Spontaneous
  Country: FR (occurrence: None)
  Receive Date: 20150326
  Receipt Date: 20150326
  Transmission Date: 20150721
  Serious: Yes (Hospitalization)
  Sender: FDA-Public Use
  Company Number: CTI_01643_2014

PATIENT
  Age: 31 Year
  Sex: Female

DRUGS (2)
  1. LOXEN [Suspect]
     Active Substance: NICARDIPINE HYDROCHLORIDE
     Indication: PREMATURE LABOUR
     Dosage: 20 MG, X 3/DAYS ORAL?
     Route: 048
  2. CELESTENE [Concomitant]
     Active Substance: BETAMETHASONE

REACTIONS (2)
  - Off label use [None]
  - Acute pulmonary oedema [None]
